FAERS Safety Report 25365753 (Version 2)
Quarter: 2025Q2

REPORT INFORMATION
  Report Type: Spontaneous
  Country: PL (occurrence: PL)
  Receive Date: 20250528
  Receipt Date: 20250605
  Transmission Date: 20250716
  Serious: Yes (Hospitalization)
  Sender: ABBVIE
  Company Number: PL-ABBVIE-6296502

PATIENT
  Age: 70 Year
  Sex: Female

DRUGS (13)
  1. RINVOQ [Suspect]
     Active Substance: UPADACITINIB
     Indication: Spondyloarthropathy
     Dosage: 15 MILLIGRAM
     Route: 048
     Dates: start: 202212
  2. DAPAGLIFLOZIN [Concomitant]
     Active Substance: DAPAGLIFLOZIN
     Indication: Product used for unknown indication
  3. ATORVASTATIN [Concomitant]
     Active Substance: ATORVASTATIN
     Indication: Product used for unknown indication
  4. VITAMIN D [Concomitant]
     Active Substance: VITAMIN D NOS
     Indication: Product used for unknown indication
  5. CALCIUM [Concomitant]
     Active Substance: CALCIUM
     Indication: Product used for unknown indication
  6. METHOTREXATE [Concomitant]
     Active Substance: METHOTREXATE
     Indication: Product used for unknown indication
     Dates: start: 202212
  7. METHOTREXATE [Concomitant]
     Active Substance: METHOTREXATE
     Indication: Product used for unknown indication
     Dates: start: 201601, end: 201802
  8. METHOTREXATE [Concomitant]
     Active Substance: METHOTREXATE
     Indication: Product used for unknown indication
     Dates: start: 202104
  9. RAMIPRIL [Concomitant]
     Active Substance: RAMIPRIL
     Indication: Product used for unknown indication
  10. FOLIC ACID [Concomitant]
     Active Substance: FOLIC ACID
     Indication: Product used for unknown indication
  11. MAGNESIUM CITRATE\PYRIDOXINE [Concomitant]
     Active Substance: MAGNESIUM CITRATE\PYRIDOXINE
     Indication: Product used for unknown indication
  12. Calperos [Concomitant]
     Indication: Product used for unknown indication
     Route: 048
  13. PANTOPRAZOLE [Concomitant]
     Active Substance: PANTOPRAZOLE
     Indication: Product used for unknown indication
     Route: 048

REACTIONS (9)
  - Nephrotic syndrome [Recovered/Resolved]
  - Secondary amyloidosis [Recovered/Resolved]
  - Proteinuria [Recovered/Resolved]
  - Renal amyloidosis [Unknown]
  - Swelling [Recovered/Resolved]
  - Hyperlipidaemia [Recovered/Resolved]
  - Urinary sediment present [Unknown]
  - Peripheral swelling [Recovered/Resolved]
  - Gastrointestinal amyloidosis [Unknown]

NARRATIVE: CASE EVENT DATE: 20230101
